FAERS Safety Report 24389151 (Version 2)
Quarter: 2025Q1

REPORT INFORMATION
  Report Type: Report from Study
  Country: US (occurrence: US)
  Receive Date: 20241002
  Receipt Date: 20250129
  Transmission Date: 20250408
  Serious: Yes (Hospitalization)
  Sender: ABBVIE
  Company Number: US-ABBVIE-5944265

PATIENT
  Age: 31 Year
  Sex: Male

DRUGS (2)
  1. RINVOQ [Suspect]
     Active Substance: UPADACITINIB
     Indication: Crohn^s disease
     Route: 048
     Dates: start: 20240711
  2. RINVOQ [Suspect]
     Active Substance: UPADACITINIB
     Indication: Crohn^s disease
     Route: 048
     Dates: start: 20241016

REACTIONS (9)
  - Pyrexia [Unknown]
  - Crohn^s disease [Unknown]
  - Dehydration [Unknown]
  - Drug ineffective [Unknown]
  - Tinnitus [Unknown]
  - Rash papular [Unknown]
  - Rash pruritic [Unknown]
  - Dry skin [Unknown]
  - Ileostomy [Unknown]

NARRATIVE: CASE EVENT DATE: 20240101
